FAERS Safety Report 18947999 (Version 1)
Quarter: 2021Q1

REPORT INFORMATION
  Report Type: Spontaneous
  Country: US (occurrence: US)
  Receive Date: 20210226
  Receipt Date: 20210226
  Transmission Date: 20210420
  Serious: No
  Sender: FDA-Public Use
  Company Number: US-PAIPHARMA-2021-US-002059

PATIENT
  Age: 9 Year
  Sex: Female

DRUGS (1)
  1. FLUOXETINE ORAL SOLUTION USP, AF DF [Suspect]
     Active Substance: FLUOXETINE HYDROCHLORIDE
     Indication: PRODUCT USED FOR UNKNOWN INDICATION
     Dosage: UNKNOWN
     Route: 048
     Dates: start: 202010

REACTIONS (2)
  - Drug ineffective [Unknown]
  - Abnormal behaviour [Unknown]
